FAERS Safety Report 16781500 (Version 1)
Quarter: 2019Q3

REPORT INFORMATION
  Report Type: Report from Study
  Country: HU (occurrence: HU)
  Receive Date: 20190906
  Receipt Date: 20190906
  Transmission Date: 20191005
  Serious: Yes (Hospitalization, Other)
  Sender: FDA-Public Use
  Company Number: HU-MYLANLABS-2019M1081248

PATIENT
  Age: 68 Year
  Sex: Female
  Weight: 60 kg

DRUGS (18)
  1. TAFINLAR [Suspect]
     Active Substance: DABRAFENIB MESYLATE
     Dosage: 150 MG, BID
     Route: 065
     Dates: start: 20180720, end: 20180820
  2. MEKINIST [Suspect]
     Active Substance: TRAMETINIB DIMETHYL SULFOXIDE
     Indication: METASTATIC MALIGNANT MELANOMA
     Dosage: 2 MG, QD
     Route: 048
     Dates: start: 20180720, end: 20180802
  3. DALNESSA [Concomitant]
     Indication: PRODUCT USED FOR UNKNOWN INDICATION
     Dosage: 4 MG/5 MG (1X/IN THE MORNING)
     Route: 065
  4. ZELBORAF [Concomitant]
     Active Substance: VEMURAFENIB
     Indication: PRODUCT USED FOR UNKNOWN INDICATION
     Route: 065
  5. COTELLIC [Concomitant]
     Active Substance: COBIMETINIB
     Indication: PRODUCT USED FOR UNKNOWN INDICATION
     Route: 065
  6. QUAMATEL [Concomitant]
     Active Substance: FAMOTIDINE
     Indication: GASTROOESOPHAGEAL REFLUX DISEASE
     Dosage: 20 MG, BID
     Route: 065
  7. FRONTIN [Concomitant]
     Active Substance: ALPRAZOLAM
     Indication: PRODUCT USED FOR UNKNOWN INDICATION
     Dosage: 0.25 MG, QD
     Route: 065
  8. MEKINIST [Suspect]
     Active Substance: TRAMETINIB DIMETHYL SULFOXIDE
     Indication: PRODUCT USED FOR UNKNOWN INDICATION
     Dosage: UNK
     Route: 065
     Dates: end: 20180820
  9. TAFINLAR [Suspect]
     Active Substance: DABRAFENIB MESYLATE
     Dosage: QD 2 DF, QD
     Route: 065
     Dates: start: 20181108
  10. TAFINLAR [Suspect]
     Active Substance: DABRAFENIB MESYLATE
     Indication: METASTATIC MALIGNANT MELANOMA
     Dosage: 2 DF, BID
     Route: 048
     Dates: end: 20190124
  11. ONDANSETRON [Suspect]
     Active Substance: ONDANSETRON
     Indication: PRODUCT USED FOR UNKNOWN INDICATION
     Dosage: 1 DF, QD
     Route: 065
     Dates: start: 20190124, end: 20190128
  12. AMLODIPINE [Suspect]
     Active Substance: AMLODIPINE BESYLATE
     Indication: PRODUCT USED FOR UNKNOWN INDICATION
     Route: 065
  13. CONTROLOC [Concomitant]
     Active Substance: PANTOPRAZOLE SODIUM
     Indication: PRODUCT USED FOR UNKNOWN INDICATION
     Dosage: 40 MG, (2X1/DAY)
     Route: 065
  14. APO-FAMOTIDIN [Concomitant]
     Indication: PRODUCT USED FOR UNKNOWN INDICATION
     Dosage: 20 MG, BID
     Route: 065
  15. MEKINIST [Suspect]
     Active Substance: TRAMETINIB DIMETHYL SULFOXIDE
     Indication: PRODUCT USED FOR UNKNOWN INDICATION
     Dosage: 1 DF, QD
     Route: 048
     Dates: start: 20181108, end: 201903
  16. TAFINLAR [Suspect]
     Active Substance: DABRAFENIB MESYLATE
     Indication: PRODUCT USED FOR UNKNOWN INDICATION
     Dosage: UNK
     Route: 065
     Dates: end: 20180820
  17. TAFINLAR [Suspect]
     Active Substance: DABRAFENIB MESYLATE
     Dosage: 2 DF, QD
     Route: 048
     Dates: start: 20190130, end: 20190210
  18. TAFINLAR [Suspect]
     Active Substance: DABRAFENIB MESYLATE
     Dosage: 150 MILLIGRAM, BID
     Route: 048
     Dates: start: 20180720, end: 20180802

REACTIONS (34)
  - Anaemia [Not Recovered/Not Resolved]
  - Pyrexia [Unknown]
  - Nausea [Recovering/Resolving]
  - Febrile neutropenia [Recovered/Resolved]
  - Retching [Unknown]
  - Leukopenia [Recovered/Resolved]
  - Discomfort [Recovered/Resolved]
  - Choking sensation [Recovering/Resolving]
  - Constipation [Recovering/Resolving]
  - Photopsia [Recovered/Resolved]
  - Conjunctival hyperaemia [Recovering/Resolving]
  - Chills [Recovering/Resolving]
  - Decreased appetite [Recovering/Resolving]
  - Blood pressure increased [Recovered/Resolved]
  - Asthenia [Not Recovered/Not Resolved]
  - Hypersomnia [Not Recovered/Not Resolved]
  - Inflammatory marker increased [Unknown]
  - Dysgeusia [Recovered/Resolved]
  - White blood cell count decreased [Unknown]
  - Renal impairment [Recovering/Resolving]
  - Blood lactic acid increased [Unknown]
  - Amylase increased [Unknown]
  - Thrombocytopenia [Recovering/Resolving]
  - Blood creatine phosphokinase increased [Unknown]
  - Hypotension [Unknown]
  - Rash [Recovering/Resolving]
  - Hypoaesthesia [Recovering/Resolving]
  - General physical health deterioration [Recovering/Resolving]
  - Eating disorder [Recovering/Resolving]
  - Ageusia [Recovered/Resolved]
  - Eye haemorrhage [Unknown]
  - Lactobacillus infection [Recovering/Resolving]
  - Weight decreased [Recovering/Resolving]
  - Dysphagia [Recovering/Resolving]

NARRATIVE: CASE EVENT DATE: 20180724
